FAERS Safety Report 24758784 (Version 1)
Quarter: 2024Q4

REPORT INFORMATION
  Report Type: Spontaneous
  Country: US (occurrence: None)
  Receive Date: 20241220
  Receipt Date: 20241220
  Transmission Date: 20250115
  Serious: Yes (Hospitalization)
  Sender: Public
  Company Number: None

PATIENT
  Age: 69 Year
  Sex: Male
  Weight: 78 kg

DRUGS (5)
  1. FLUOROURACIL [Suspect]
     Active Substance: FLUOROURACIL
     Dates: end: 20241205
  2. CAMPTOSAR [Suspect]
     Active Substance: IRINOTECAN HYDROCHLORIDE
     Dates: end: 20241205
  3. LEUCOVORIN CALCIUM [Suspect]
     Active Substance: LEUCOVORIN CALCIUM
     Dates: end: 20241205
  4. NIVOLUMAB [Suspect]
     Active Substance: NIVOLUMAB
     Dates: end: 20241205
  5. ELOXATIN [Suspect]
     Active Substance: OXALIPLATIN
     Dates: end: 20241205

REACTIONS (12)
  - Device dislocation [None]
  - Dysphagia [None]
  - Sputum discoloured [None]
  - Productive cough [None]
  - Abdominal pain upper [None]
  - Tachycardia [None]
  - Pancytopenia [None]
  - Lymphopenia [None]
  - Thrombocytopenia [None]
  - Leukopenia [None]
  - Pneumonia [None]
  - Aspiration [None]

NARRATIVE: CASE EVENT DATE: 20241213
